FAERS Safety Report 20738811 (Version 2)
Quarter: 2022Q2

REPORT INFORMATION
  Report Type: Spontaneous
  Country: CA (occurrence: None)
  Receive Date: 20220422
  Receipt Date: 20220425
  Transmission Date: 20220721
  Serious: Yes (Other)
  Sender: FDA-Public Use
  Company Number: CA-PFIZER INC-202200555667

PATIENT
  Age: 33 Year
  Sex: Female

DRUGS (14)
  1. METHOTREXATE [Suspect]
     Active Substance: METHOTREXATE
     Indication: Product used for unknown indication
     Route: 065
     Dates: start: 200503, end: 200504
  2. METHOTREXATE [Suspect]
     Active Substance: METHOTREXATE
     Route: 065
     Dates: start: 200910, end: 2011
  3. METHOTREXATE [Suspect]
     Active Substance: METHOTREXATE
     Route: 065
     Dates: start: 201403, end: 201711
  4. CALCIUM [Concomitant]
     Active Substance: CALCIUM
     Route: 065
  5. IRON [Concomitant]
     Active Substance: IRON
     Route: 065
  6. VITAMINS NOS [Concomitant]
     Active Substance: VITAMINS
     Route: 065
  7. PREDNISONE [Concomitant]
     Active Substance: PREDNISONE
     Route: 065
  8. PREDNISONE [Concomitant]
     Active Substance: PREDNISONE
     Route: 065
  9. PREDNISONE [Concomitant]
     Active Substance: PREDNISONE
     Route: 065
  10. PREDNISONE [Concomitant]
     Active Substance: PREDNISONE
     Route: 065
  11. PREDNISONE [Concomitant]
     Active Substance: PREDNISONE
     Route: 065
  12. PROBIOTICS NOS [Concomitant]
     Active Substance: PROBIOTICS NOS
     Route: 065
  13. VITAMIN B12 [Concomitant]
     Active Substance: CYANOCOBALAMIN
     Route: 065
  14. VITAMIN D NOS [Concomitant]
     Active Substance: VITAMIN D NOS
     Route: 065

REACTIONS (16)
  - Laryngeal stenosis [Unknown]
  - Myringotomy [Unknown]
  - Pulmonary cavitation [Unknown]
  - Appendicectomy [Unknown]
  - Palindromic rheumatism [Unknown]
  - Glomerulonephritis rapidly progressive [Unknown]
  - Drug ineffective [Unknown]
  - Pulmonary mass [Not Recovered/Not Resolved]
  - Condition aggravated [Unknown]
  - Haematuria [Unknown]
  - Alopecia [Not Recovered/Not Resolved]
  - Bronchial wall thickening [Unknown]
  - Antineutrophil cytoplasmic antibody positive [Unknown]
  - Antineutrophil cytoplasmic antibody positive [Unknown]
  - Epistaxis [Unknown]
  - Osteoporosis [Unknown]

NARRATIVE: CASE EVENT DATE: 20050301
